FAERS Safety Report 10817871 (Version 1)
Quarter: 2015Q1

REPORT INFORMATION
  Report Type: Spontaneous
  Country: FR (occurrence: FR)
  Receive Date: 20150218
  Receipt Date: 20150218
  Transmission Date: 20150721
  Serious: Yes (Hospitalization, Other)
  Sender: FDA-Public Use
  Company Number: FR-PFIZER INC-2015057306

PATIENT
  Age: 71 Year
  Sex: Male

DRUGS (11)
  1. PRIMALAN [Concomitant]
     Active Substance: MEQUITAZINE
     Dosage: UNK
  2. IMOVANE [Concomitant]
     Active Substance: ZOPICLONE
     Dosage: UNK
  3. TRANSIPEG [Concomitant]
     Active Substance: POLYETHYLENE GLYCOL 3350
     Dosage: UNK
  4. RAMIPRIL. [Suspect]
     Active Substance: RAMIPRIL
     Indication: HYPERTENSION
     Dosage: 5 MG, DAILY
     Route: 048
     Dates: end: 20150122
  5. CELIPROLOL [Concomitant]
     Active Substance: CELIPROLOL
     Dosage: UNK
  6. TERALITHE [Suspect]
     Active Substance: LITHIUM CARBONATE
     Indication: BIPOLAR DISORDER
     Dosage: 400 MG, 2X/DAY
     Route: 048
     Dates: end: 20150118
  7. FINASTERIDE. [Concomitant]
     Active Substance: FINASTERIDE
     Dosage: UNK
  8. PARALYOC [Concomitant]
     Active Substance: ACETAMINOPHEN
     Dosage: UNK
  9. TERALITHE [Suspect]
     Active Substance: LITHIUM CARBONATE
     Dosage: 400 MG, 2X/DAY
     Route: 048
     Dates: start: 20150119, end: 20150122
  10. EFFERALGAN [Concomitant]
     Active Substance: ACETAMINOPHEN
     Dosage: UNK
  11. GLUCOPHAGE [Concomitant]
     Active Substance: METFORMIN HYDROCHLORIDE
     Dosage: UNK

REACTIONS (6)
  - Abnormal behaviour [Recovering/Resolving]
  - Coordination abnormal [Recovering/Resolving]
  - Hypothermia [Recovered/Resolved]
  - Tremor [Recovering/Resolving]
  - Hypotension [Recovering/Resolving]
  - Drug level increased [Recovered/Resolved]

NARRATIVE: CASE EVENT DATE: 20150104
